FAERS Safety Report 9265064 (Version 1)
Quarter: 2013Q2

REPORT INFORMATION
  Report Type: Spontaneous
  Country: US (occurrence: None)
  Receive Date: 20130430
  Receipt Date: 20130430
  Transmission Date: 20140414
  Serious: No
  Sender: FDA-Public Use
  Company Number: None

PATIENT
  Age: 58 Year
  Sex: Female
  Weight: 92.08 kg

DRUGS (1)
  1. METRONIDAZOLE [Suspect]
     Indication: CLOSTRIDIUM DIFFICILE INFECTION
     Dosage: 1 TAB
     Route: 048
     Dates: start: 20130412, end: 20130415

REACTIONS (14)
  - Headache [None]
  - Blister [None]
  - No therapeutic response [None]
  - Lip exfoliation [None]
  - Glossodynia [None]
  - Glossitis [None]
  - Skin exfoliation [None]
  - Abdominal pain upper [None]
  - Musculoskeletal stiffness [None]
  - Dizziness [None]
  - Balance disorder [None]
  - Vision blurred [None]
  - Diarrhoea [None]
  - Faeces discoloured [None]
